FAERS Safety Report 6434741-1 (Version None)
Quarter: 2009Q4

REPORT INFORMATION
  Report Type: 
  Country: None (occurrence: None)
  Receive Date: 20091109
  Receipt Date: 20091109
  Transmission Date: 20100525
  Serious: Yes (Other)
  Sender: FDA-Public Use
  Company Number: None

PATIENT
  Age: 25 Year
  Sex: Male
  Weight: 74.8435 kg

DRUGS (2)
  1. BUPROPION HCL [Suspect]
     Indication: ANXIETY
     Dosage: 300MG ONCE DAILY PO
     Route: 048
     Dates: start: 20091105, end: 20091106
  2. BUPROPION HCL [Suspect]
     Indication: DEPRESSION
     Dosage: 300MG ONCE DAILY PO
     Route: 048
     Dates: start: 20091105, end: 20091106

REACTIONS (2)
  - DISTURBANCE IN ATTENTION [None]
  - HEADACHE [None]
